FAERS Safety Report 4325208-5 (Version None)
Quarter: 2004Q1

REPORT INFORMATION
  Report Type: 
  Country: None (occurrence: None)
  Receive Date: 20040323
  Receipt Date: 20031215
  Transmission Date: 20041129
  Serious: No
  Sender: FDA-Public Use
  Company Number: USA031254637

PATIENT
  Age: 70 Year
  Sex: Male
  Weight: 109 kg

DRUGS (3)
  1. CIALIS [Suspect]
     Dosage: 10 MG/AS NEEDED
     Dates: start: 20031213
  2. ZOCOR [Concomitant]
  3. BISOPROLOL [Concomitant]

REACTIONS (1)
  - DRUG INEFFECTIVE [None]
